FAERS Safety Report 8499750 (Version 2)
Quarter: 2015Q4

REPORT INFORMATION
  Report Type: Report from Study
  Country: US (occurrence: US)
  Receive Date: 20120409
  Receipt Date: 20151008
  Transmission Date: 20160305
  Serious: Yes (Death)
  Sender: FDA-Public Use
  Company Number: US-ROCHE-1056642

PATIENT
  Sex: Female

DRUGS (26)
  1. CARBOPLATIN. [Concomitant]
     Active Substance: CARBOPLATIN
     Route: 065
  2. HERCEPTIN [Suspect]
     Active Substance: TRASTUZUMAB
     Indication: BREAST CANCER
     Route: 042
  3. NEULASTA [Concomitant]
     Active Substance: PEGFILGRASTIM
     Route: 065
  4. HERCEPTIN [Suspect]
     Active Substance: TRASTUZUMAB
     Indication: LYMPHOEDEMA
     Route: 042
     Dates: start: 20071107
  5. HERCEPTIN [Suspect]
     Active Substance: TRASTUZUMAB
     Route: 042
  6. NAVELBINE [Concomitant]
     Active Substance: VINORELBINE TARTRATE
     Route: 042
  7. ZOFRAN [Concomitant]
     Active Substance: ONDANSETRON HYDROCHLORIDE
     Route: 048
  8. GEMZAR [Concomitant]
     Active Substance: GEMCITABINE HYDROCHLORIDE
     Route: 065
  9. NAVELBINE [Concomitant]
     Active Substance: VINORELBINE TARTRATE
     Route: 042
  10. HERCEPTIN [Suspect]
     Active Substance: TRASTUZUMAB
     Route: 042
  11. HERCEPTIN [Suspect]
     Active Substance: TRASTUZUMAB
     Route: 042
  12. NEUPOGEN [Suspect]
     Active Substance: FILGRASTIM
     Indication: PRODUCT USED FOR UNKNOWN INDICATION
     Route: 058
     Dates: start: 20111012
  13. HEPARIN [Concomitant]
     Active Substance: HEPARIN SODIUM
  14. FERRLECIT (UNITED STATES) [Concomitant]
     Route: 065
  15. HERCEPTIN [Suspect]
     Active Substance: TRASTUZUMAB
     Route: 042
     Dates: start: 20080610
  16. DENOSUMAB [Concomitant]
     Active Substance: DENOSUMAB
     Route: 065
  17. HERCEPTIN [Suspect]
     Active Substance: TRASTUZUMAB
     Route: 042
  18. DECADRON [Concomitant]
     Active Substance: DEXAMETHASONE
     Route: 042
  19. XGEVA [Concomitant]
     Active Substance: DENOSUMAB
     Route: 058
  20. ABRAXANE [Concomitant]
     Active Substance: PACLITAXEL
     Route: 065
  21. ALOXI [Concomitant]
     Active Substance: PALONOSETRON HYDROCHLORIDE
     Route: 042
  22. PACLITAXEL. [Concomitant]
     Active Substance: PACLITAXEL
     Route: 065
  23. MORPHINE [Concomitant]
     Active Substance: MORPHINE
     Dosage: ONCE IN 12 HOURS AS NEEDED
     Route: 048
  24. DECADRON [Concomitant]
     Active Substance: DEXAMETHASONE
     Route: 042
  25. DECADRON [Concomitant]
     Active Substance: DEXAMETHASONE
     Route: 042
  26. GEMZAR [Concomitant]
     Active Substance: GEMCITABINE HYDROCHLORIDE
     Route: 065

REACTIONS (1)
  - Death [Fatal]
